FAERS Safety Report 7071353-3 (Version None)
Quarter: 2010Q4

REPORT INFORMATION
  Report Type: 
  Country: None (occurrence: None)
  Receive Date: 20101020
  Receipt Date: 20101004
  Transmission Date: 20110411
  Serious: Yes (Other)
  Sender: FDA-Public Use
  Company Number: ACO_02622_2010

PATIENT
  Age: 70 Year
  Sex: Female

DRUGS (8)
  1. AMPYRA [Suspect]
     Indication: GAIT DISTURBANCE
     Dosage: (10 MG BID ORAL)
     Route: 048
     Dates: start: 20100810, end: 20100903
  2. AMPYRA [Suspect]
     Indication: MULTIPLE SCLEROSIS
     Dosage: (10 MG BID ORAL)
     Route: 048
     Dates: start: 20100810, end: 20100903
  3. PROVIGIL [Concomitant]
  4. AMANTADINE [Concomitant]
  5. THYROID PILL [Concomitant]
  6. CHOLESTEROL PILL [Concomitant]
  7. AVONEX [Concomitant]
  8. ANTIHYPERTENSIVES [Concomitant]

REACTIONS (5)
  - CONDITION AGGRAVATED [None]
  - DIARRHOEA [None]
  - DRY MOUTH [None]
  - HALLUCINATION, VISUAL [None]
  - URINARY TRACT INFECTION [None]
